FAERS Safety Report 25488776 (Version 2)
Quarter: 2025Q3

REPORT INFORMATION
  Report Type: Spontaneous
  Country: US (occurrence: US)
  Receive Date: 20250627
  Receipt Date: 20250710
  Transmission Date: 20251020
  Serious: No
  Sender: INCYTE
  Company Number: US-EVENT-003175

PATIENT
  Age: 67 Year

DRUGS (1)
  1. JAKAFI [Suspect]
     Active Substance: RUXOLITINIB
     Indication: Essential thrombocythaemia
     Dosage: 10 MILLIGRAM, BID
     Route: 065

REACTIONS (3)
  - Platelet count increased [Recovering/Resolving]
  - Off label use [Unknown]
  - Drug ineffective for unapproved indication [Unknown]
